FAERS Safety Report 4377159-8 (Version None)
Quarter: 2004Q2

REPORT INFORMATION
  Report Type: 
  Country: None (occurrence: None)
  Receive Date: 20040609
  Receipt Date: 20040225
  Transmission Date: 20050107
  Serious: No
  Sender: FDA-Public Use
  Company Number: 2004201259US

PATIENT
  Age: 67 Year
  Sex: Female

DRUGS (3)
  1. BEXTRA [Suspect]
     Indication: ARTHRALGIA
     Dosage: 10 MG, QD
  2. AXID [Concomitant]
  3. ZOCOR [Concomitant]

REACTIONS (3)
  - DISTURBANCE IN ATTENTION [None]
  - INFLUENZA LIKE ILLNESS [None]
  - URTICARIA [None]
